FAERS Safety Report 5241600-9 (Version None)
Quarter: 2007Q1

REPORT INFORMATION
  Report Type: 
  Country: None (occurrence: None)
  Receive Date: 20061208
  Receipt Date: 20050812
  Transmission Date: 20070707
  Serious: Yes (Other)
  Sender: FDA-Public Use
  Company Number: 2005UW12061

PATIENT
  Age: 58 Year
  Sex: Male
  Weight: 78.017 kg

DRUGS (4)
  1. CRESTOR [Suspect]
     Indication: BLOOD CHOLESTEROL INCREASED
     Dosage: 20 MG PO
     Route: 048
     Dates: start: 20040401
  2. CRESTOR [Suspect]
     Indication: BLOOD CHOLESTEROL INCREASED
     Dosage: 10 MG PO
     Route: 048
     Dates: end: 20050802
  3. TENORMIN [Concomitant]
  4. LISINOPRIL [Concomitant]

REACTIONS (3)
  - DRY SKIN [None]
  - IMPAIRED HEALING [None]
  - WOUND COMPLICATION [None]
